FAERS Safety Report 10201004 (Version 1)
Quarter: 2014Q2

REPORT INFORMATION
  Report Type: Spontaneous
  Country: ZA (occurrence: ZA)
  Receive Date: 20140528
  Receipt Date: 20140528
  Transmission Date: 20141212
  Serious: Yes (Hospitalization)
  Sender: FDA-Public Use
  Company Number: ZA-NOVOPROD-411087

PATIENT
  Sex: Male
  Weight: 2.8 kg

DRUGS (2)
  1. PROTAPHANE FLEXPEN [Suspect]
     Indication: GESTATIONAL DIABETES
     Dosage: 36 IU, SINGLE (EVENING)
     Route: 064
     Dates: end: 20140510
  2. NOVORAPID FLEXPEN [Suspect]
     Indication: GESTATIONAL DIABETES
     Dosage: 74 IU, QD (26 IU MORNING, 24 IU LUNCH AND SUPPER)
     Route: 064
     Dates: end: 20140510

REACTIONS (2)
  - Premature baby [Not Recovered/Not Resolved]
  - Foetal exposure during pregnancy [Recovered/Resolved]
